FAERS Safety Report 14749381 (Version 2)
Quarter: 2018Q3

REPORT INFORMATION
  Report Type: Report from Study
  Country: US (occurrence: US)
  Receive Date: 20180411
  Receipt Date: 20180928
  Transmission Date: 20181010
  Serious: No
  Sender: FDA-Public Use
  Company Number: US-AMGEN-USASP2018036500

PATIENT
  Age: 87 Year
  Sex: Female
  Weight: 59.86 kg

DRUGS (3)
  1. PROLIA [Suspect]
     Active Substance: DENOSUMAB
     Indication: OSTEOPOROSIS POSTMENOPAUSAL
     Dosage: 60 MG/ML, UNK
     Route: 058
     Dates: start: 20160125
  2. PROLIA [Suspect]
     Active Substance: DENOSUMAB
     Dosage: 60 MG/ML, UNK
     Route: 058
     Dates: start: 20161208, end: 20171010
  3. PROLIA [Suspect]
     Active Substance: DENOSUMAB
     Dosage: 60 MG/ML, UNK
     Route: 058
     Dates: start: 20160728

REACTIONS (5)
  - Bone disorder [Unknown]
  - Malaise [Not Recovered/Not Resolved]
  - Thyroid disorder [Not Recovered/Not Resolved]
  - Blood parathyroid hormone increased [Recovered/Resolved]
  - Bone pain [Recovered/Resolved]
